FAERS Safety Report 20829566 (Version 2)
Quarter: 2022Q3

REPORT INFORMATION
  Report Type: Spontaneous
  Country: US (occurrence: US)
  Receive Date: 20220513
  Receipt Date: 20220811
  Transmission Date: 20221027
  Serious: Yes (Hospitalization)
  Sender: FDA-Public Use
  Company Number: US-BIOGEN-2022BI01120641

PATIENT
  Sex: Female

DRUGS (2)
  1. ADUHELM [Suspect]
     Active Substance: ADUCANUMAB-AVWA
     Indication: Amnesia
     Route: 050
     Dates: start: 20211221
  2. ADUHELM [Suspect]
     Active Substance: ADUCANUMAB-AVWA
     Route: 050
     Dates: start: 20220314

REACTIONS (1)
  - Breast cancer female [Not Recovered/Not Resolved]

NARRATIVE: CASE EVENT DATE: 20220301
